FAERS Safety Report 7368807-9 (Version None)
Quarter: 2011Q1

REPORT INFORMATION
  Report Type: 
  Country: None (occurrence: None)
  Receive Date: 20110307
  Receipt Date: 20110228
  Transmission Date: 20110831
  Serious: Yes (Hospitalization)
  Sender: FDA-Public Use
  Company Number: 2011SP009311

PATIENT
  Age: 26 Year
  Sex: Male

DRUGS (3)
  1. DIVALPROEX [Concomitant]
  2. THORAZINE [Concomitant]
  3. SAPHRIS [Suspect]
     Indication: BIPOLAR DISORDER
     Dosage: 10 MG; BID; SL
     Route: 060
     Dates: start: 20101101

REACTIONS (3)
  - ANGER [None]
  - HYPERSOMNIA [None]
  - AGGRESSION [None]
